FAERS Safety Report 23151820 (Version 1)
Quarter: 2023Q4

REPORT INFORMATION
  Report Type: Spontaneous
  Country: CN (occurrence: CN)
  Receive Date: 20231107
  Receipt Date: 20231107
  Transmission Date: 20240110
  Serious: Yes (Hospitalization, Other)
  Sender: FDA-Public Use
  Company Number: None

PATIENT
  Age: 51 Year
  Sex: Male
  Weight: 60 kg

DRUGS (11)
  1. CYCLOPHOSPHAMIDE [Suspect]
     Active Substance: CYCLOPHOSPHAMIDE
     Indication: Chemotherapy
     Dosage: 1.2 G, ONE TIME IN ONE DAY, D1, AS A PART OF FIRST CYCLE R-CHOP REGIMEN CHEMOTHERAPY
     Route: 041
     Dates: start: 20230921, end: 20230921
  2. CYCLOPHOSPHAMIDE [Suspect]
     Active Substance: CYCLOPHOSPHAMIDE
     Indication: Lymphoma
     Dosage: UNK, AS A PART OF SECOND CYCLE R-CHOP REGIMEN CHEMOTHERAPY
     Route: 065
     Dates: start: 20231010
  3. RITUXIMAB [Suspect]
     Active Substance: RITUXIMAB
     Indication: Lymphoma
     Dosage: 500 MG, ONE TIME IN ONE DAY, D0, AS A PART OF FIRST CYCLE R-CHOP REGIMEN CHEMOTHERAPY
     Route: 065
     Dates: start: 20230920, end: 20230920
  4. RITUXIMAB [Suspect]
     Active Substance: RITUXIMAB
     Dosage: 100 MG, ONE TIME IN ONE DAY, D0, AS A PART OF FIRST CYCLE R-CHOP REGIMEN CHEMOTHERAPY
     Route: 041
     Dates: start: 20230920, end: 20230920
  5. RITUXIMAB [Suspect]
     Active Substance: RITUXIMAB
     Dosage: UNK, AS A PART OF SECOND CYCLE R-CHOP REGIMEN CHEMOTHERAPY
     Route: 065
     Dates: start: 20231010
  6. DEXAMETHASONE SODIUM PHOSPHATE [Suspect]
     Active Substance: DEXAMETHASONE SODIUM PHOSPHATE
     Indication: Lymphoma
     Dosage: 15 MG, ONE TIME IN ONE DAY. D1-5, AS A PART OF FIRST CYCLE R-CHOP REGIMEN CHEMOTHERAPY
     Route: 041
     Dates: start: 20230921, end: 20230925
  7. DEXAMETHASONE SODIUM PHOSPHATE [Suspect]
     Active Substance: DEXAMETHASONE SODIUM PHOSPHATE
     Dosage: UNK, AS A PART OF SECOND CYCLE R-CHOP REGIMEN CHEMOTHERAPY
     Route: 065
     Dates: start: 20231010
  8. EPIRUBICIN HYDROCHLORIDE [Suspect]
     Active Substance: EPIRUBICIN HYDROCHLORIDE
     Indication: Chemotherapy
     Dosage: 120 MG, ONE TIME IN ONE DAY, D1, AS A PART OF FIRST CYCLE R-CHOP REGIMEN CHEMOTHERAPY
     Route: 041
     Dates: start: 20230921, end: 20230921
  9. EPIRUBICIN HYDROCHLORIDE [Suspect]
     Active Substance: EPIRUBICIN HYDROCHLORIDE
     Indication: Lymphoma
     Dosage: UNK, AS A PART OF SECOND CYCLE R-CHOP REGIMEN CHEMOTHERAPY
     Route: 065
     Dates: start: 20231010
  10. VINCRISTINE SULFATE [Suspect]
     Active Substance: VINCRISTINE SULFATE
     Indication: Chemotherapy
     Dosage: 1 MG, ONE TIME IN ONE DAY, D1, AS A PART OF FIRST CYCLE R-CHOP REGIMEN CHEMOTHERAPY
     Route: 042
     Dates: start: 20230921, end: 20230921
  11. VINCRISTINE SULFATE [Suspect]
     Active Substance: VINCRISTINE SULFATE
     Indication: Lymphoma
     Dosage: UNK, AS A PART OF SECOND CYCLE R-CHOP REGIMEN CHEMOTHERAPY
     Route: 065
     Dates: start: 20231010

REACTIONS (4)
  - Condition aggravated [Unknown]
  - Lymphoma [Unknown]
  - Liver injury [Recovering/Resolving]
  - Hepatic function abnormal [Recovering/Resolving]

NARRATIVE: CASE EVENT DATE: 20230922
